FAERS Safety Report 10663055 (Version 1)
Quarter: 2014Q4

REPORT INFORMATION
  Report Type: Spontaneous
  Country: GB (occurrence: GB)
  Receive Date: 20141218
  Receipt Date: 20141218
  Transmission Date: 20150529
  Serious: Yes (Death, Other)
  Sender: FDA-Public Use
  Company Number: GB-BAYER-2014-185849

PATIENT
  Age: 67 Year
  Sex: Female
  Weight: 57 kg

DRUGS (10)
  1. ACETYLSALICYLIC ACID (} 100 MG) [Suspect]
     Active Substance: ASPIRIN
     Indication: ANTIPLATELET THERAPY
     Dosage: 300 MG, UNK
     Route: 048
     Dates: start: 20141121, end: 20141121
  2. SERTRALINE [Concomitant]
     Active Substance: SERTRALINE HYDROCHLORIDE
  3. TICAGRELOR [Suspect]
     Active Substance: TICAGRELOR
     Indication: ANTIPLATELET THERAPY
     Dosage: 90 UNK, UNK
     Route: 048
     Dates: start: 20141122, end: 20141127
  4. RAMIPRIL. [Concomitant]
     Active Substance: RAMIPRIL
  5. ATORVASTATIN [Concomitant]
     Active Substance: ATORVASTATIN
  6. TICAGRELOR [Suspect]
     Active Substance: TICAGRELOR
     Indication: ANTIPLATELET THERAPY
     Dosage: 180 MG, UNK
     Route: 048
     Dates: start: 20141121, end: 20141121
  7. BISOPROLOL [Concomitant]
     Active Substance: BISOPROLOL
  8. HEPARIN [Concomitant]
     Active Substance: HEPARIN SODIUM
     Indication: STENT PLACEMENT
     Dosage: 8000 IU, UNK
  9. GLYCERYL TRINITRATE [Concomitant]
     Active Substance: NITROGLYCERIN
  10. ACETYLSALICYLIC ACID (} 100 MG) [Suspect]
     Active Substance: ASPIRIN
     Indication: ANTIPLATELET THERAPY
     Dosage: 75 UNK, UNK
     Route: 048
     Dates: start: 20141122, end: 20141127

REACTIONS (3)
  - Cerebral haemorrhage [Fatal]
  - Circulatory collapse [Not Recovered/Not Resolved]
  - Subdural haemorrhage [Fatal]

NARRATIVE: CASE EVENT DATE: 20141127
